FAERS Safety Report 6546057-3 (Version None)
Quarter: 2010Q1

REPORT INFORMATION
  Report Type: 
  Country: None (occurrence: None)
  Receive Date: 20100119
  Receipt Date: 20100104
  Transmission Date: 20100710
  Serious: Yes (Hospitalization)
  Sender: FDA-Public Use
  Company Number: 2009AC000186

PATIENT
  Age: 66 Year
  Sex: Male

DRUGS (60)
  1. DIGOXIN [Suspect]
     Dosage: 0.25 MG; QD; PO
     Route: 048
     Dates: start: 20001201, end: 20080101
  2. TRIAMCINOLONE [Concomitant]
  3. HUMALOG [Concomitant]
  4. GUAIFENESIN [Concomitant]
  5. CARTIA XT [Concomitant]
  6. FLUOCINONIDE [Concomitant]
  7. TRICOR [Concomitant]
  8. FUROSEMIDE [Concomitant]
  9. LOVENOX [Concomitant]
  10. WARFARIN SODIUM [Concomitant]
  11. FLECAINIDE [Concomitant]
  12. AVANDARYL [Concomitant]
  13. LANTUS [Concomitant]
  14. CRESTOR [Concomitant]
  15. UROXATRAL [Concomitant]
  16. TRAMADOL [Concomitant]
  17. XANAX [Concomitant]
  18. AMBIEN [Concomitant]
  19. PRILOSEC [Concomitant]
  20. FUROSEMIDE [Concomitant]
  21. METOPROLOL [Concomitant]
  22. PROPAFENONE [Concomitant]
  23. WARFARIN SODIUM [Concomitant]
  24. DIOVAN [Concomitant]
  25. METFORMIN HCL [Concomitant]
  26. MULTI-VITAMINS [Concomitant]
  27. COUMADIN [Concomitant]
  28. LASIX [Concomitant]
  29. PROPAFENONE [Concomitant]
  30. CARDIZEM [Concomitant]
  31. METOPROLOL [Concomitant]
  32. AMBIEN [Concomitant]
  33. XANAX [Concomitant]
  34. TRAMADOL [Concomitant]
  35. AVANDARYL [Concomitant]
  36. UROXATRAL [Concomitant]
  37. DIOVAN [Concomitant]
  38. PRILOSEC [Concomitant]
  39. POTASSIUM [Concomitant]
  40. LANTUS [Concomitant]
  41. METFORMIN HCL [Concomitant]
  42. CRESTOR [Concomitant]
  43. ALLI [Concomitant]
  44. CRESTOR [Concomitant]
  45. MULTI-VITAMINS [Concomitant]
  46. AVANDARYL [Concomitant]
  47. TRICOR [Concomitant]
  48. POTASSIUM CHLORIDE [Concomitant]
  49. METFORMIN HCL [Concomitant]
  50. UROXATRAL [Concomitant]
  51. FUROSEMIDE [Concomitant]
  52. NIACIN [Concomitant]
  53. LOVAZA [Concomitant]
  54. ASPIRIN [Concomitant]
  55. INSULIN [Concomitant]
  56. CARTIA XT [Concomitant]
  57. TRAMADOL [Concomitant]
  58. ZOLPIDEM [Concomitant]
  59. DIOVAN [Concomitant]
  60. SOTALOL [Concomitant]

REACTIONS (13)
  - ATRIAL FIBRILLATION [None]
  - BLOOD GLUCOSE INCREASED [None]
  - DEEP VEIN THROMBOSIS [None]
  - DIABETES MELLITUS [None]
  - ECONOMIC PROBLEM [None]
  - FATIGUE [None]
  - MULTIPLE INJURIES [None]
  - OEDEMA PERIPHERAL [None]
  - OESOPHAGEAL ADENOCARCINOMA [None]
  - OESOPHAGEAL CARCINOMA [None]
  - OESOPHAGITIS [None]
  - SICK SINUS SYNDROME [None]
  - SURGERY [None]
